FAERS Safety Report 16475327 (Version 2)
Quarter: 2019Q3

REPORT INFORMATION
  Report Type: Spontaneous
  Country: US (occurrence: US)
  Receive Date: 20190625
  Receipt Date: 20190719
  Transmission Date: 20191004
  Serious: No
  Sender: FDA-Public Use
  Company Number: US-SA-2019SA171363

PATIENT
  Age: 69 Year
  Sex: Female

DRUGS (2)
  1. PRALUENT [Suspect]
     Active Substance: ALIROCUMAB
     Indication: TYPE IIA HYPERLIPIDAEMIA
  2. PRALUENT [Suspect]
     Active Substance: ALIROCUMAB
     Indication: HYPERTRIGLYCERIDAEMIA
     Dosage: 150 MG, QOW
     Route: 058
     Dates: start: 20190618

REACTIONS (4)
  - Arthritis [Unknown]
  - Pain [Unknown]
  - Cough [Unknown]
  - Chills [Unknown]

NARRATIVE: CASE EVENT DATE: 20190618
